FAERS Safety Report 14787262 (Version 2)
Quarter: 2024Q1

REPORT INFORMATION
  Report Type: Spontaneous
  Country: ES (occurrence: ES)
  Receive Date: 20180421
  Receipt Date: 20240212
  Transmission Date: 20240410
  Serious: Yes (Life-Threatening, Hospitalization, Other)
  Sender: FDA-Public Use
  Company Number: ES-AUROBINDO-AUR-APL-2018-020595

PATIENT
  Age: 71 Year
  Sex: Male

DRUGS (3)
  1. LEVOFLOXACIN [Interacting]
     Active Substance: LEVOFLOXACIN
     Indication: Respiratory tract infection
     Dosage: 500 MILLIGRAM, DAILY
     Route: 048
     Dates: start: 20171125, end: 20171128
  2. AMIODARONE [Interacting]
     Active Substance: AMIODARONE
     Indication: Atrial fibrillation
     Dosage: 100 MILLIGRAM, DAILY
     Route: 048
     Dates: start: 20170908, end: 20171128
  3. SOTALOL [Interacting]
     Active Substance: SOTALOL
     Indication: Supraventricular tachycardia
     Dosage: 80 MILLIGRAM, TWO TIMES A DAY
     Route: 048
     Dates: start: 20171125, end: 20171128

REACTIONS (1)
  - Ventricular tachycardia [Recovered/Resolved]

NARRATIVE: CASE EVENT DATE: 20171128
